FAERS Safety Report 8034018-7 (Version None)
Quarter: 2011Q4

REPORT INFORMATION
  Report Type: 
  Country: None (occurrence: None)
  Receive Date: 20111202
  Receipt Date: 20100121
  Transmission Date: 20120403
  Serious: Yes (Hospitalization, Other)
  Sender: FDA-Public Use
  Company Number: 2010SP004581

PATIENT
  Age: 35 Year
  Sex: Female
  Weight: 102.5129 kg

DRUGS (5)
  1. NUVARING [Suspect]
     Indication: MENSTRUATION IRREGULAR
     Dates: start: 20070101, end: 20071022
  2. NUVARING [Suspect]
     Indication: CONTRACEPTION
     Dates: start: 20070101, end: 20071022
  3. NUVARING [Suspect]
     Indication: MENSTRUATION IRREGULAR
     Dates: end: 20080101
  4. NUVARING [Suspect]
     Indication: CONTRACEPTION
     Dates: end: 20080101
  5. IMITREX [Concomitant]

REACTIONS (10)
  - PULMONARY EMBOLISM [None]
  - DEEP VEIN THROMBOSIS [None]
  - UMBILICAL HERNIA [None]
  - WEIGHT INCREASED [None]
  - MENSTRUATION IRREGULAR [None]
  - HEADACHE [None]
  - VERTIGO [None]
  - PHARYNGITIS [None]
  - MIGRAINE [None]
  - PLEURISY [None]
